FAERS Safety Report 23070118 (Version 3)
Quarter: 2023Q4

REPORT INFORMATION
  Report Type: Spontaneous
  Country: US (occurrence: US)
  Receive Date: 20231016
  Receipt Date: 20231120
  Transmission Date: 20240110
  Serious: Yes (Other)
  Sender: FDA-Public Use
  Company Number: US-PFIZER INC-202300316070

PATIENT
  Age: 81 Year
  Sex: Female
  Weight: 45.805 kg

DRUGS (1)
  1. TIKOSYN [Suspect]
     Active Substance: DOFETILIDE
     Indication: Atrial fibrillation
     Dosage: UNK

REACTIONS (4)
  - Thrombosis [Recovered/Resolved]
  - Pain [Recovered/Resolved]
  - Visual impairment [Unknown]
  - Haematoma [Unknown]
